FAERS Safety Report 7174814-1 (Version None)
Quarter: 2010Q4

REPORT INFORMATION
  Report Type: 
  Country: None (occurrence: None)
  Receive Date: 20101219
  Receipt Date: 20100419
  Transmission Date: 20110411
  Serious: No
  Sender: FDA-Public Use
  Company Number: US-AMGEN-KDL395616

PATIENT

DRUGS (5)
  1. ENBREL [Suspect]
     Indication: PRODUCT USED FOR UNKNOWN INDICATION
     Dosage: 50 MG, QWK
     Route: 058
  2. HYDROXYCHLOROQUINE SULFATE [Concomitant]
     Dosage: 200 MG, UNK
     Route: 048
  3. METHOTREXATE [Concomitant]
     Dosage: 2.5 MG, UNK
     Route: 048
  4. OXAPROZIN [Concomitant]
     Dosage: 600 MG, UNK
     Route: 048
  5. LISINOPRIL [Concomitant]
     Dosage: 2.5 MG, UNK
     Route: 048

REACTIONS (3)
  - INJECTION SITE ERYTHEMA [None]
  - INJECTION SITE PRURITUS [None]
  - SKIN REACTION [None]
